FAERS Safety Report 10470852 (Version 3)
Quarter: 2015Q2

REPORT INFORMATION
  Report Type: Report from Study
  Country: NL (occurrence: NL)
  Receive Date: 20140923
  Receipt Date: 20150417
  Transmission Date: 20150821
  Serious: Yes (Hospitalization)
  Sender: FDA-Public Use
  Company Number: NL-ABBVIE-14P-114-1284785-00

PATIENT
  Age: 49 Year
  Sex: Female
  Weight: 78 kg

DRUGS (6)
  1. TRAMADOL [Concomitant]
     Active Substance: TRAMADOL
     Indication: PRODUCT USED FOR UNKNOWN INDICATION
     Route: 048
  2. CARBOMER [Concomitant]
     Active Substance: CARBOMER
     Indication: PRODUCT USED FOR UNKNOWN INDICATION
     Dosage: 2MG/G (CARBOMEER980) TUBE 10G
     Route: 047
  3. TIBOLON [Concomitant]
     Indication: PRODUCT USED FOR UNKNOWN INDICATION
     Route: 048
  4. OFLOXACINE [Concomitant]
     Active Substance: OFLOXACIN
     Indication: PRODUCT USED FOR UNKNOWN INDICATION
     Dosage: 3MG/G TUBE 3G
     Route: 047
  5. LUCRIN (LEUPRORELINE) [Suspect]
     Active Substance: LEUPROLIDE ACETATE
     Indication: ENDOMETRIOSIS
     Route: 058
     Dates: start: 20100909
  6. CHLOORAMFENICOL [Concomitant]
     Indication: PRODUCT USED FOR UNKNOWN INDICATION
     Dosage: 5MG/ML FL 10ML
     Route: 047

REACTIONS (6)
  - Nephrolithiasis [Recovered/Resolved]
  - Ureteric stenosis [Not Recovered/Not Resolved]
  - Ureteritis [Not Recovered/Not Resolved]
  - Ureteral spasm [Not Recovered/Not Resolved]
  - Nephritis [Not Recovered/Not Resolved]
  - Nephrolithiasis [Recovered/Resolved]

NARRATIVE: CASE EVENT DATE: 2014
